FAERS Safety Report 19144789 (Version 1)
Quarter: 2021Q2

REPORT INFORMATION
  Report Type: Spontaneous
  Country: US (occurrence: US)
  Receive Date: 20210415
  Receipt Date: 20210415
  Transmission Date: 20210717
  Serious: Yes (Other)
  Sender: FDA-Public Use
  Company Number: None

PATIENT
  Age: 62 Year
  Sex: Female
  Weight: 68.9 kg

DRUGS (5)
  1. PROCHLORPERAZINE 10MG TABLETS [Concomitant]
  2. LYNPARZA [Suspect]
     Active Substance: OLAPARIB
     Indication: OVARIAN CANCER METASTATIC
     Route: 048
     Dates: start: 20200418, end: 20210227
  3. ONDANSETRON 8MG TABLETS [Concomitant]
     Active Substance: ONDANSETRON HYDROCHLORIDE
  4. VITAMIN B12 [Concomitant]
     Active Substance: CYANOCOBALAMIN
  5. OXYCODONE 5MG [Concomitant]
     Active Substance: OXYCODONE

REACTIONS (1)
  - Acute myeloid leukaemia [None]

NARRATIVE: CASE EVENT DATE: 20210405
